FAERS Safety Report 10195006 (Version 2)
Quarter: 2014Q2

REPORT INFORMATION
  Report Type: Not Available
  Country: US (occurrence: US)
  Receive Date: 20140526
  Receipt Date: 20140526
  Transmission Date: 20141212
  Serious: No
  Sender: FDA-Public Use
  Company Number: US-LUPIN PHARMACEUTICALS INC.-E2B_00001679

PATIENT
  Age: 72 Year
  Sex: Female
  Weight: 81.72 kg

DRUGS (5)
  1. RABEPRAZOLE SODIUM DELAYED-RELEASE TABLETS [Suspect]
     Indication: BARRETT^S OESOPHAGUS
     Dates: start: 201401
  2. RABEPRAZOLE SODIUM DELAYED-RELEASE TABLETS [Suspect]
     Indication: GASTROOESOPHAGEAL REFLUX DISEASE
  3. LEVOTHYROXINE [Concomitant]
     Indication: HYPOTHYROIDISM
  4. METFORMIN [Concomitant]
     Indication: DIABETES MELLITUS
  5. ASPIRIN [Concomitant]
     Indication: CARDIAC DISORDER

REACTIONS (3)
  - Drug ineffective [Not Recovered/Not Resolved]
  - Oropharyngeal pain [Not Recovered/Not Resolved]
  - Product substitution issue [Not Recovered/Not Resolved]
